FAERS Safety Report 4513548-6 (Version None)
Quarter: 2004Q4

REPORT INFORMATION
  Report Type: 
  Country: None (occurrence: None)
  Receive Date: 20041130
  Receipt Date: 20040713
  Transmission Date: 20050328
  Serious: No
  Sender: FDA-Public Use
  Company Number: US-GLAXOSMITHKLINE-A0518073A

PATIENT
  Age: 58 Year
  Sex: Female

DRUGS (4)
  1. WELLBUTRIN XL [Suspect]
     Indication: DEPRESSION
     Dosage: 300MG PER DAY
     Route: 048
     Dates: start: 20040623
  2. HUMALOG [Concomitant]
  3. EVISTA [Concomitant]
  4. MULTIVITAMIN [Concomitant]

REACTIONS (15)
  - AGITATION [None]
  - ANGER [None]
  - ANOREXIA [None]
  - ANXIETY [None]
  - CRYING [None]
  - DIZZINESS [None]
  - DYSGEUSIA [None]
  - EMOTIONAL DISORDER [None]
  - FUNGAL INFECTION [None]
  - HYPERHIDROSIS [None]
  - INSOMNIA [None]
  - MYALGIA [None]
  - NAUSEA [None]
  - TREMOR [None]
  - WEIGHT DECREASED [None]
